FAERS Safety Report 21423303 (Version 9)
Quarter: 2023Q1

REPORT INFORMATION
  Report Type: Report from Study
  Country: ES (occurrence: ES)
  Receive Date: 20221007
  Receipt Date: 20230321
  Transmission Date: 20230417
  Serious: Yes (Hospitalization, Other)
  Sender: FDA-Public Use
  Company Number: ES-GILEAD-2022-0599511

PATIENT
  Age: 61 Year
  Sex: Male
  Weight: 111 kg

DRUGS (92)
  1. BREXUCABTAGENE AUTOLEUCEL [Suspect]
     Active Substance: BREXUCABTAGENE AUTOLEUCEL
     Indication: Mantle cell lymphoma
     Dosage: 68 ML
     Route: 065
     Dates: start: 20220909, end: 20220909
  2. FLUDARABINE [Suspect]
     Active Substance: FLUDARABINE PHOSPHATE
     Indication: Bone marrow conditioning regimen
     Dosage: 65 MG
     Route: 065
     Dates: start: 20220825, end: 20220827
  3. CYCLOPHOSPHAMIDE [Suspect]
     Active Substance: CYCLOPHOSPHAMIDE
     Indication: Bone marrow conditioning regimen
     Dosage: 1077 MG
     Route: 065
     Dates: start: 20220825, end: 20220827
  4. MESNA [Suspect]
     Active Substance: MESNA
     Indication: Bone marrow conditioning regimen
     Dosage: 538.52 MG
     Route: 065
     Dates: start: 20220827, end: 20220827
  5. CYTARABINE [Suspect]
     Active Substance: CYTARABINE
     Indication: Product used for unknown indication
     Dosage: 1 GRAM PER SQUARE METRE QD
     Route: 065
     Dates: start: 20220729, end: 20220730
  6. ASPIRIN [Concomitant]
     Active Substance: ASPIRIN
     Dosage: 100,MG,DAILY
     Route: 048
     Dates: start: 2013
  7. ASPIRIN [Concomitant]
     Active Substance: ASPIRIN
     Dosage: 100,MG,DAILY
     Route: 048
     Dates: start: 2013, end: 20220831
  8. ASPIRIN [Concomitant]
     Active Substance: ASPIRIN
     Dosage: 100,MG,DAILY
     Route: 048
     Dates: start: 2013, end: 20220830
  9. BISOPROLOL [Concomitant]
     Active Substance: BISOPROLOL
     Dosage: 2.5,MG,DAILY
     Route: 048
  10. BISOPROLOL [Concomitant]
     Active Substance: BISOPROLOL
     Dosage: 2.5,MG,DAILY
     Route: 048
  11. ENALAPRIL [Concomitant]
     Active Substance: ENALAPRIL
     Dosage: 5,MG,DAILY
     Route: 048
  12. ENALAPRIL [Concomitant]
     Active Substance: ENALAPRIL
     Dosage: 5,MG,DAILY
     Route: 048
  13. ATORVASTATIN [Concomitant]
     Active Substance: ATORVASTATIN
     Dosage: 10,MG,DAILY
     Route: 048
  14. ATORVASTATIN [Concomitant]
     Active Substance: ATORVASTATIN
     Dosage: 10,MG,DAILY
     Route: 048
  15. ALLOPURINOL [Concomitant]
     Active Substance: ALLOPURINOL
     Dosage: 300,MG,DAILY
     Route: 048
  16. ALLOPURINOL [Concomitant]
     Active Substance: ALLOPURINOL
     Dosage: 300,MG,DAILY
     Route: 048
  17. ALLOPURINOL [Concomitant]
     Active Substance: ALLOPURINOL
     Dosage: 100,MG,THREE TIMES DAILY
     Route: 048
     Dates: start: 20220823, end: 20220824
  18. ALLOPURINOL [Concomitant]
     Active Substance: ALLOPURINOL
     Dosage: 300,MG,DAILY
     Route: 048
     Dates: end: 20220822
  19. OMEPRAZOLE [Concomitant]
     Active Substance: OMEPRAZOLE
     Dosage: 20,MG,DAILY
     Route: 048
  20. OMEPRAZOLE [Concomitant]
     Active Substance: OMEPRAZOLE
     Dosage: 20,MG,DAILY
     Route: 048
  21. BEMIPARIN [Concomitant]
     Active Substance: BEMIPARIN
     Dosage: 300,IU,DAILY
     Route: 058
     Dates: start: 20220823, end: 20220902
  22. PHYTONADIONE [Concomitant]
     Active Substance: PHYTONADIONE
     Dosage: 10,MG,DAILY
     Route: 042
     Dates: start: 20220823, end: 20220831
  23. PHYTONADIONE [Concomitant]
     Active Substance: PHYTONADIONE
     Dosage: 10,MG,DAILY
     Route: 042
     Dates: start: 20220903, end: 20220916
  24. PHYTONADIONE [Concomitant]
     Active Substance: PHYTONADIONE
     Dosage: 10,MG,THREE TIMES DAILY
     Route: 042
     Dates: start: 20220917, end: 20220921
  25. PHYTONADIONE [Concomitant]
     Active Substance: PHYTONADIONE
     Dosage: 10,MG,FOUR TIMES DAILY
     Route: 042
     Dates: start: 20220918, end: 20221007
  26. PHYTONADIONE [Concomitant]
     Active Substance: PHYTONADIONE
     Dosage: 10,MG,DAILY
     Route: 042
     Dates: start: 20221015, end: 20221025
  27. URSODIOL [Concomitant]
     Active Substance: URSODIOL
     Dosage: 150,MG,FOUR TIMES DAILY
     Route: 048
     Dates: start: 20220823, end: 20221025
  28. POLYETHYLENE GLYCOLS [Concomitant]
     Active Substance: POLYETHYLENE GLYCOLS
     Dosage: 13.8,G,DAILY
     Route: 048
     Dates: start: 20220824, end: 20220829
  29. POLYETHYLENE GLYCOLS [Concomitant]
     Active Substance: POLYETHYLENE GLYCOLS
     Dosage: 13.8,G,DAILY
     Route: 048
     Dates: start: 20220824, end: 20220828
  30. CLORHEXIDINA [CHLORHEXIDINE] [Concomitant]
     Dosage: 15,ML,THREE TIMES DAILY
     Route: 050
     Dates: start: 20220825, end: 20221025
  31. FUROSEMIDE [Concomitant]
     Active Substance: FUROSEMIDE
     Dosage: 20,MG,DAILY
     Route: 042
     Dates: start: 20220825, end: 20220913
  32. FUROSEMIDE [Concomitant]
     Active Substance: FUROSEMIDE
     Dosage: 40,MG,ONCE
     Route: 042
     Dates: start: 20220826, end: 20220828
  33. FUROSEMIDE [Concomitant]
     Active Substance: FUROSEMIDE
     Dosage: 40,MG,TWICE DAILY
     Route: 042
     Dates: start: 20220829, end: 20220830
  34. FUROSEMIDE [Concomitant]
     Active Substance: FUROSEMIDE
     Dosage: 20,MG,THREE TIMES DAILY
     Route: 042
     Dates: start: 20220914, end: 20221008
  35. FUROSEMIDE [Concomitant]
     Active Substance: FUROSEMIDE
     Dosage: 20,MG,DAILY
     Route: 042
     Dates: start: 20221009, end: 20221011
  36. FUROSEMIDE [Concomitant]
     Active Substance: FUROSEMIDE
     Dosage: 40,MG,DAILY
     Route: 042
     Dates: start: 20221009, end: 20221012
  37. FUROSEMIDE [Concomitant]
     Active Substance: FUROSEMIDE
     Dosage: 20,MG,TWICE DAILY
     Route: 042
     Dates: start: 20221012, end: 20221021
  38. FUROSEMIDE [Concomitant]
     Active Substance: FUROSEMIDE
     Dosage: 40,MG,TWICE DAILY
     Route: 042
     Dates: start: 20221013, end: 20221021
  39. ONDANSETRON [Concomitant]
     Active Substance: ONDANSETRON
     Dosage: 8,MG,DAILY
     Route: 042
     Dates: start: 20220825, end: 20220829
  40. MYCOSTATIN [Concomitant]
     Active Substance: NYSTATIN
     Dosage: 100000,IU,THREE TIMES DAILY
     Route: 050
     Dates: start: 20220825, end: 20221010
  41. RASBURICASE [Concomitant]
     Active Substance: RASBURICASE
     Dosage: 19,MG,DAILY
     Route: 042
     Dates: start: 20220825, end: 20220829
  42. RASBURICASE [Concomitant]
     Active Substance: RASBURICASE
     Dosage: 19,MG,DAILY
     Route: 042
     Dates: start: 20220825, end: 20220828
  43. SULFAMETHOXAZOLE\TRIMETHOPRIM [Concomitant]
     Active Substance: SULFAMETHOXAZOLE\TRIMETHOPRIM
     Dosage: 160/800,MG,DAILY
     Route: 048
     Dates: start: 20220825, end: 20220909
  44. ACYCLOVIR [Concomitant]
     Active Substance: ACYCLOVIR
     Dosage: 200,MG,TWICE DAILY
     Route: 048
     Dates: start: 20220825, end: 20220905
  45. ACYCLOVIR [Concomitant]
     Active Substance: ACYCLOVIR
     Dosage: 800,MG,TWICE DAILY
     Route: 048
     Dates: start: 20220905, end: 20221006
  46. ACYCLOVIR [Concomitant]
     Active Substance: ACYCLOVIR
     Dosage: 800,MG,TWICE DAILY
     Route: 048
     Dates: start: 20221012, end: 20221025
  47. ACYCLOVIR [Concomitant]
     Active Substance: ACYCLOVIR
     Dosage: 200,MG,TWICE DAILY
     Route: 048
     Dates: start: 20220825, end: 20220904
  48. ALBUMIN HUMAN [Concomitant]
     Active Substance: ALBUMIN HUMAN
     Dosage: 10,G,TWICE DAILY
     Route: 042
     Dates: start: 20220825, end: 20220825
  49. ALBUMIN HUMAN [Concomitant]
     Active Substance: ALBUMIN HUMAN
     Dosage: 10,G,THREE TIMES DAILY
     Route: 042
     Dates: start: 20220826, end: 20220829
  50. ALBUMIN HUMAN [Concomitant]
     Active Substance: ALBUMIN HUMAN
     Dosage: 10,G,DAILY
     Route: 042
     Dates: start: 20220830, end: 20220903
  51. ALBUMIN HUMAN [Concomitant]
     Active Substance: ALBUMIN HUMAN
     Dosage: 10,G,TWICE DAILY
     Route: 042
     Dates: start: 20220912, end: 20220912
  52. ALBUMIN HUMAN [Concomitant]
     Active Substance: ALBUMIN HUMAN
     Dosage: 10,G,THREE TIMES DAILY
     Route: 042
     Dates: start: 20220913, end: 20220922
  53. ALBUMIN HUMAN [Concomitant]
     Active Substance: ALBUMIN HUMAN
     Dosage: 10,G,TWICE DAILY
     Route: 042
     Dates: start: 20220930, end: 20221018
  54. ALBUMIN HUMAN [Concomitant]
     Active Substance: ALBUMIN HUMAN
     Dosage: 10,G,ONCE
     Route: 042
     Dates: start: 20221019, end: 20221019
  55. ALBUMIN HUMAN [Concomitant]
     Active Substance: ALBUMIN HUMAN
     Dosage: 10,G,DAILY
     Route: 042
     Dates: start: 20220830, end: 20220902
  56. ALOCLAIR [POVIDONE] [Concomitant]
     Dosage: 1,OTHER,THREE TIMES DAILY
     Route: 050
     Dates: start: 20220825, end: 20220924
  57. PIPERACILLIN SODIUM\TAZOBACTAM SODIUM [Concomitant]
     Active Substance: PIPERACILLIN SODIUM\TAZOBACTAM SODIUM
     Dosage: 4/0.5,G,FOUR TIMES DAILY
     Route: 042
     Dates: start: 20220827, end: 20220829
  58. DEXCHLORPHENIRAMINE [Concomitant]
     Active Substance: DEXCHLORPHENIRAMINE
     Dosage: 5,MG,ONCE
     Route: 042
     Dates: start: 20220830, end: 20220830
  59. DEXCHLORPHENIRAMINE [Concomitant]
     Active Substance: DEXCHLORPHENIRAMINE
     Dosage: 5,MG,ONCE
     Route: 042
     Dates: start: 20220909, end: 20220909
  60. LEVETIRACETAM [Concomitant]
     Active Substance: LEVETIRACETAM
     Dosage: 500,MG,TWICE DAILY
     Route: 048
     Dates: start: 20220830, end: 20220927
  61. LEVETIRACETAM [Concomitant]
     Active Substance: LEVETIRACETAM
     Dosage: 250,MG,TWICE DAILY
     Route: 048
     Dates: start: 20220928, end: 20221010
  62. LEVOFLOXACIN [Concomitant]
     Active Substance: LEVOFLOXACIN
     Dosage: 500,MG,DAILY
     Route: 042
     Dates: start: 20220905, end: 20220906
  63. LEVOFLOXACIN [Concomitant]
     Active Substance: LEVOFLOXACIN
     Dosage: 500,MG,DAILY
     Route: 042
     Dates: start: 20220927, end: 20221017
  64. ACETAMINOPHEN [Concomitant]
     Active Substance: ACETAMINOPHEN
     Dosage: 1,G,DAILY
     Route: 048
     Dates: start: 20220909, end: 20220910
  65. ANIDULAFUNGIN [Concomitant]
     Active Substance: ANIDULAFUNGIN
     Dosage: 100,MG,DAILY
     Route: 042
     Dates: start: 20220913, end: 20221025
  66. CANRENOATE POTASSIUM [Concomitant]
     Active Substance: CANRENOATE POTASSIUM
     Dosage: 200,MG,DAILY
     Route: 042
     Dates: start: 20220913, end: 20221010
  67. METOCLOPRAMIDE [Concomitant]
     Active Substance: METOCLOPRAMIDE
     Dosage: 10,MG,DAILY
     Route: 042
     Dates: start: 20220915, end: 20220919
  68. METOCLOPRAMIDE [Concomitant]
     Active Substance: METOCLOPRAMIDE
     Dosage: 10,MG,DAILY
     Route: 042
     Dates: start: 20220915, end: 20220918
  69. TEICOPLANIN [Concomitant]
     Active Substance: TEICOPLANIN
     Dosage: 800,MG,TWICE DAILY
     Route: 042
     Dates: start: 20220915, end: 20220919
  70. FIBRINOGENO [Concomitant]
     Dosage: 1,G,DAILY
     Route: 042
     Dates: start: 20220918, end: 20220920
  71. FIBRINOGENO [Concomitant]
     Dosage: 1,G,TWICE DAILY
     Route: 042
     Dates: start: 20220921, end: 20220922
  72. FIBRINOGENO [Concomitant]
     Dosage: 1,G,THREE TIMES DAILY
     Route: 042
     Dates: start: 20220922, end: 20220923
  73. FIBRINOGENO [Concomitant]
     Dosage: 1,G,TWICE DAILY
     Route: 042
     Dates: start: 20220924, end: 20220927
  74. FIBRINOGENO [Concomitant]
     Dosage: 1,G,DAILY
     Route: 042
     Dates: start: 20220928, end: 20221001
  75. FIBRINOGENO [Concomitant]
     Dosage: 1,G,TWICE DAILY
     Route: 042
     Dates: start: 20221002, end: 20221013
  76. FIBRINOGENO [Concomitant]
     Dosage: 1,G,DAILY
     Route: 042
     Dates: start: 20221014, end: 20221017
  77. FIBRINOGENO [Concomitant]
     Dosage: 1,G,TWICE DAILY
     Route: 042
     Dates: start: 20220923, end: 20220926
  78. FIBRINOGENO [Concomitant]
     Dosage: 1,G,DAILY
     Route: 042
     Dates: start: 20220927, end: 20220930
  79. TRANEXAMIC ACID [Concomitant]
     Active Substance: TRANEXAMIC ACID
     Dosage: 500,MG,THREE TIMES DAILY
     Route: 042
     Dates: start: 20220920, end: 20220923
  80. COMBIPRASAL [IPRATROPIUM BROMIDE;SALBUTAMOL SULFATE] [Concomitant]
     Dosage: 0.5/2.5,MG,THREE TIMES DAILY
     Route: 055
     Dates: start: 20220924, end: 20220929
  81. LINEZOLID [Concomitant]
     Active Substance: LINEZOLID
     Dosage: 600,MG,TWICE DAILY
     Route: 042
     Dates: start: 20220924, end: 20220928
  82. MEROPENEM [Concomitant]
     Active Substance: MEROPENEM
     Dosage: 1,G,THREE TIMES DAILY
     Route: 042
     Dates: start: 20220924, end: 20220928
  83. ACETYLCYSTEINE [Concomitant]
     Active Substance: ACETYLCYSTEINE
     Dosage: 300,MG,TWICE DAILY
     Route: 050
     Dates: start: 20220925, end: 20220928
  84. CEFTRIAXONE [Concomitant]
     Active Substance: CEFTRIAXONE
     Dosage: 2,G,DAILY
     Route: 042
     Dates: start: 20220928, end: 20221005
  85. FILGRASTIM [Concomitant]
     Active Substance: FILGRASTIM
     Dosage: 48,OTHER,DAILY
     Route: 058
     Dates: start: 20220928, end: 20221013
  86. FOSCARNET [Concomitant]
     Active Substance: FOSCARNET
     Dosage: 5,G,TWICE DAILY
     Route: 042
     Dates: start: 20221005, end: 20221012
  87. AMPHOTERICIN B [Concomitant]
     Active Substance: AMPHOTERICIN B
     Dosage: 24,MG,DAILY
     Route: 055
     Dates: start: 20221014, end: 20221017
  88. OMEPRAZOLE [Concomitant]
     Active Substance: OMEPRAZOLE
     Dosage: 20,MG,DAILY
     Route: 048
     Dates: end: 20221010
  89. PENTAMIDINE [Concomitant]
     Active Substance: PENTAMIDINE
     Dosage: 300,MG,DAILY
     Route: 055
     Dates: start: 20221018, end: 20221025
  90. POTASSIUM CHLORIDE [Concomitant]
     Active Substance: POTASSIUM CHLORIDE
     Dosage: 8,OTHER,THREE TIMES DAILY
     Route: 048
     Dates: start: 20221019, end: 20221020
  91. AMIKACIN [Concomitant]
     Active Substance: AMIKACIN
     Dosage: 1340,MG,DAILY
     Route: 042
     Dates: start: 20221021, end: 20221022
  92. COLISTIMETHATE SODIUM [Concomitant]
     Active Substance: COLISTIMETHATE SODIUM

REACTIONS (5)
  - Hyperbilirubinaemia [Recovered/Resolved]
  - Blood bilirubin increased [Recovered/Resolved]
  - Cytokine release syndrome [Recovered/Resolved]
  - Pyrexia [Recovered/Resolved]
  - Hypotension [Recovered/Resolved]

NARRATIVE: CASE EVENT DATE: 20220915
